FAERS Safety Report 12071872 (Version 2)
Quarter: 2016Q1

REPORT INFORMATION
  Report Type: Spontaneous
  Country: TR (occurrence: TR)
  Receive Date: 20160212
  Receipt Date: 20160225
  Transmission Date: 20160526
  Serious: Yes (Death, Hospitalization)
  Sender: FDA-Public Use
  Company Number: TR-ACTELION-A-CH2016-131213

PATIENT
  Age: 55 Year
  Sex: Female
  Weight: 60 kg

DRUGS (1)
  1. OPSUMIT [Suspect]
     Active Substance: MACITENTAN
     Indication: PULMONARY HYPERTENSION
     Dosage: 10 MG, QD
     Route: 048
     Dates: start: 20160117

REACTIONS (5)
  - Oxygen saturation decreased [Fatal]
  - Respiratory failure [Fatal]
  - General physical health deterioration [Fatal]
  - Acute respiratory distress syndrome [Fatal]
  - Pneumonia [Fatal]
